FAERS Safety Report 8765258 (Version 1)
Quarter: 2012Q4

REPORT INFORMATION
  Report Type: 
  Country: GB (occurrence: GB)
  Receive Date: 20120903
  Receipt Date: 20120903
  Transmission Date: 20130627
  Serious: Yes (Hospitalization, Other)
  Sender: FDA-Public Use
  Company Number: GB-PAR PHARMACEUTICAL, INC-2012SCPR004590

PATIENT

DRUGS (2)
  1. CABERGOLINE [Suspect]
     Indication: PITUITARY TUMOUR BENIGN
     Dosage: UNK, Unknown
     Route: 065
  2. CABERGOLINE [Suspect]
     Dosage: 0.5 mg, twice weekly
     Route: 065

REACTIONS (4)
  - Pituitary haemorrhage [Recovering/Resolving]
  - Paraparesis [Recovering/Resolving]
  - Dysarthria [Recovering/Resolving]
  - Drooling [Recovering/Resolving]
